FAERS Safety Report 5383858-1 (Version None)
Quarter: 2007Q3

REPORT INFORMATION
  Report Type: 
  Country: None (occurrence: None)
  Receive Date: 20070711
  Receipt Date: 20070705
  Transmission Date: 20080115
  Serious: Yes (Hospitalization)
  Sender: FDA-Public Use
  Company Number: JP-JNJFOC-20070701425

PATIENT
  Age: 32 Year
  Sex: Female

DRUGS (2)
  1. TYLENOL A [Suspect]
  2. TYLENOL A [Suspect]
     Indication: PYREXIA

REACTIONS (2)
  - GENERALISED ERYTHEMA [None]
  - PYREXIA [None]
